FAERS Safety Report 9196831 (Version 1)
Quarter: 2013Q1

REPORT INFORMATION
  Report Type: Spontaneous
  Country: PH (occurrence: PH)
  Receive Date: 20130328
  Receipt Date: 20130328
  Transmission Date: 20140127
  Serious: Yes (Hospitalization, Other)
  Sender: FDA-Public Use
  Company Number: PHHY2013PH029975

PATIENT
  Age: 30 Year
  Sex: Female

DRUGS (5)
  1. ZOMETA [Suspect]
     Indication: METASTASES TO BONE
     Dosage: UNK
  2. ZOMETA [Suspect]
     Dosage: UNK
  3. ZOMETA [Suspect]
     Dosage: UNK
  4. ZOMETA [Suspect]
     Dosage: UNK
     Dates: start: 20130225
  5. DOCETAXEL [Concomitant]

REACTIONS (3)
  - Hypocalcaemia [Recovered/Resolved]
  - Tetany [Recovered/Resolved]
  - Electrocardiogram QT prolonged [Recovered/Resolved]
